FAERS Safety Report 9059639 (Version 1)
Quarter: 2013Q1

REPORT INFORMATION
  Report Type: Spontaneous
  Country: US (occurrence: None)
  Receive Date: 20130205
  Receipt Date: 20130205
  Transmission Date: 20140127
  Serious: Yes (Other)
  Sender: FDA-Public Use
  Company Number: None

PATIENT
  Age: 42 Year
  Sex: Male
  Weight: 74.39 kg

DRUGS (1)
  1. LEVAQUIN [Suspect]

REACTIONS (13)
  - Erectile dysfunction [None]
  - Loss of libido [None]
  - Myalgia [None]
  - Burning sensation [None]
  - Tendonitis [None]
  - Tinnitus [None]
  - Benign intracranial hypertension [None]
  - Insomnia [None]
  - Blood testosterone free decreased [None]
  - Blood testosterone decreased [None]
  - Vitreous floaters [None]
  - Photophobia [None]
  - Vision blurred [None]
